FAERS Safety Report 6718150-3 (Version None)
Quarter: 2010Q2

REPORT INFORMATION
  Report Type: 
  Country: None (occurrence: None)
  Receive Date: 20100510
  Receipt Date: 20100503
  Transmission Date: 20101027
  Serious: Yes (Hospitalization)
  Sender: FDA-Public Use
  Company Number: B0651925A

PATIENT
  Age: 59 Year
  Sex: Male

DRUGS (3)
  1. DIGOXIN [Suspect]
     Dosage: 125MCG PER DAY
     Route: 048
  2. SPIRONOLACTONE [Concomitant]
  3. PERINDOPRIL ERBUMINE [Concomitant]

REACTIONS (8)
  - ABDOMINAL PAIN [None]
  - BLOOD CREATININE INCREASED [None]
  - DRUG LEVEL INCREASED [None]
  - DYSPNOEA [None]
  - HYPERKALAEMIA [None]
  - LETHARGY [None]
  - RENAL FAILURE [None]
  - THERAPEUTIC AGENT TOXICITY [None]
